FAERS Safety Report 6188867-0 (Version None)
Quarter: 2009Q2

REPORT INFORMATION
  Report Type: 
  Country: None (occurrence: None)
  Receive Date: 20090513
  Receipt Date: 20090501
  Transmission Date: 20091009
  Serious: Yes (Other)
  Sender: FDA-Public Use
  Company Number: PHHY2009IE05840

PATIENT
  Sex: Male

DRUGS (8)
  1. CLOZARIL [Suspect]
     Indication: SCHIZOPHRENIA
     Dosage: UNK
     Route: 048
     Dates: start: 20030725, end: 20090105
  2. VENLAFAXINE HCL [Concomitant]
     Indication: SCHIZOPHRENIA
     Dosage: 75 MG
     Route: 048
  3. AMISULPRIDE [Concomitant]
     Indication: SCHIZOPHRENIA
     Dosage: 75 MG
     Route: 048
  4. RAMIPRIL [Concomitant]
     Indication: HYPERTENSION
     Dosage: 7.5 MG
     Route: 048
  5. ISTIN [Concomitant]
     Indication: HYPERTENSION
     Dosage: 5 MG
     Route: 048
  6. TOPAMAX [Concomitant]
     Indication: WEIGHT DECREASED
     Dosage: 25 MG
     Route: 048
  7. DUPHALAC [Concomitant]
     Indication: CONSTIPATION
     Dosage: 15 ML, BID
     Route: 048
  8. FLURAZEPAM [Concomitant]
     Indication: THERAPEUTIC AGENT TOXICITY
     Dosage: 15 MG
     Route: 048

REACTIONS (2)
  - ELECTROCARDIOGRAM QT PROLONGED [None]
  - MYOCARDIAL ISCHAEMIA [None]
